FAERS Safety Report 4581483-3 (Version None)
Quarter: 2005Q1

REPORT INFORMATION
  Report Type: 
  Country: None (occurrence: None)
  Receive Date: 20050214
  Receipt Date: 20041101
  Transmission Date: 20050727
  Serious: No
  Sender: FDA-Public Use
  Company Number: US-GLAXOSMITHKLINE-A0532049A

PATIENT
  Age: 45 Year
  Sex: Female

DRUGS (4)
  1. LAMICTAL [Suspect]
     Indication: BIPOLAR DISORDER
     Dosage: 150MG PER DAY
     Route: 048
     Dates: start: 20040701
  2. KLONOPIN [Concomitant]
  3. ORAL CONTRACEPTIVES [Concomitant]
  4. VALPROIC ACID [Concomitant]

REACTIONS (4)
  - AGITATION [None]
  - DEPRESSION [None]
  - HYPERHIDROSIS [None]
  - PALPITATIONS [None]
